FAERS Safety Report 7081422-X (Version None)
Quarter: 2010Q4

REPORT INFORMATION
  Report Type: 
  Country: None (occurrence: None)
  Receive Date: 20101102
  Receipt Date: 20101102
  Transmission Date: 20110411
  Serious: Yes (Death, Life-Threatening)
  Sender: FDA-Public Use
  Company Number: None

PATIENT
  Age: 81 Year
  Sex: Female
  Weight: 53 kg

DRUGS (8)
  1. DIGOXIN [Suspect]
     Indication: ATRIAL FIBRILLATION
     Dosage: 250 MCG X 1 THEN 125MCG Q6H X2
  2. ACETAMINOPHEN [Concomitant]
  3. CARVEDILOL [Concomitant]
  4. DILTIAZEM [Concomitant]
  5. ESOMEPRAZOLE [Concomitant]
  6. INSULIN GLARGINE [Concomitant]
  7. SLIDING SCALE INSULIN [Concomitant]
  8. SCOPOLAMINE [Concomitant]

REACTIONS (3)
  - BRADYCARDIA [None]
  - CARDIAC ARREST [None]
  - UNRESPONSIVE TO STIMULI [None]
